FAERS Safety Report 8800635 (Version 2)
Quarter: 2015Q2

REPORT INFORMATION
  Report Type: Report from Study
  Country: US (occurrence: US)
  Receive Date: 20120921
  Receipt Date: 20150622
  Transmission Date: 20150821
  Serious: Yes (Hospitalization, Other)
  Sender: FDA-Public Use
  Company Number: US-ROCHE-1126411

PATIENT
  Age: 72 Year
  Sex: Male

DRUGS (28)
  1. AVASTIN [Suspect]
     Active Substance: BEVACIZUMAB
     Route: 042
  2. CISPLATIN. [Concomitant]
     Active Substance: CISPLATIN
     Route: 042
  3. TAGAMET [Concomitant]
     Active Substance: CIMETIDINE
     Route: 042
  4. LEVOLEUCOVORIN [Concomitant]
     Active Substance: LEVOLEUCOVORIN
     Route: 042
  5. CPT-11 [Concomitant]
     Active Substance: IRINOTECAN
     Route: 042
  6. DECADRON [Concomitant]
     Active Substance: DEXAMETHASONE
     Route: 042
  7. COMBIVENT [Concomitant]
     Active Substance: ALBUTEROL SULFATE\IPRATROPIUM BROMIDE
  8. ARANESP [Concomitant]
     Active Substance: DARBEPOETIN ALFA
     Route: 065
  9. TAXOTERE [Concomitant]
     Active Substance: DOCETAXEL
     Route: 042
     Dates: start: 200502
  10. GEMZAR [Concomitant]
     Active Substance: GEMCITABINE HYDROCHLORIDE
     Route: 042
     Dates: start: 200509
  11. KYTRIL [Concomitant]
     Active Substance: GRANISETRON HYDROCHLORIDE
     Route: 042
  12. CIMETIDINE [Concomitant]
     Active Substance: CIMETIDINE
     Route: 042
  13. NEULASTA [Concomitant]
     Active Substance: PEGFILGRASTIM
     Route: 058
  14. ATROPINE [Concomitant]
     Active Substance: ATROPINE
     Route: 042
  15. ALBUTEROL. [Concomitant]
     Active Substance: ALBUTEROL
  16. AVASTIN [Suspect]
     Active Substance: BEVACIZUMAB
     Route: 042
     Dates: start: 20051114
  17. PROCRIT [Concomitant]
     Active Substance: ERYTHROPOIETIN
     Route: 042
  18. AVASTIN [Suspect]
     Active Substance: BEVACIZUMAB
     Indication: OESOPHAGEAL CARCINOMA
     Route: 042
     Dates: start: 20050106, end: 20050121
  19. AVASTIN [Suspect]
     Active Substance: BEVACIZUMAB
     Route: 042
     Dates: start: 20050418, end: 20051114
  20. AVASTIN [Suspect]
     Active Substance: BEVACIZUMAB
     Route: 042
  21. FLUOROURACIL. [Concomitant]
     Active Substance: FLUOROURACIL
     Route: 042
  22. CARBOPLATIN. [Concomitant]
     Active Substance: CARBOPLATIN
     Route: 011
     Dates: start: 200502
  23. BENADRYL [Concomitant]
     Active Substance: DIPHENHYDRAMINE HYDROCHLORIDE
     Route: 042
  24. TYLENOL [Concomitant]
     Active Substance: ACETAMINOPHEN
     Route: 048
  25. DIGOXIN. [Concomitant]
     Active Substance: DIGOXIN
  26. CPT-11 [Concomitant]
     Active Substance: IRINOTECAN
     Route: 042
  27. DECADRON [Concomitant]
     Active Substance: DEXAMETHASONE
     Route: 042
  28. ZITHROMAX [Concomitant]
     Active Substance: AZITHROMYCIN DIHYDRATE

REACTIONS (14)
  - Disease progression [Unknown]
  - Chronic obstructive pulmonary disease [Unknown]
  - Dyspnoea [Unknown]
  - Cardiomyopathy [Unknown]
  - Pneumonia [Unknown]
  - Chest pain [Unknown]
  - Bronchitis [Recovering/Resolving]
  - Cardiac failure congestive [Unknown]
  - Back pain [Unknown]
  - Anaemia [Unknown]
  - Off label use [Unknown]
  - Pulmonary embolism [Unknown]
  - Deep vein thrombosis [Unknown]
  - Haemoptysis [Unknown]

NARRATIVE: CASE EVENT DATE: 20060315
